FAERS Safety Report 9218175 (Version 1)
Quarter: 2013Q2

REPORT INFORMATION
  Report Type: Spontaneous
  Country: TR (occurrence: TR)
  Receive Date: 20130408
  Receipt Date: 20130408
  Transmission Date: 20140414
  Serious: Yes (Other)
  Sender: FDA-Public Use
  Company Number: PHHY2013TR032753

PATIENT
  Sex: Male
  Weight: 20 kg

DRUGS (2)
  1. EDICIN [Suspect]
     Indication: PNEUMONIA
     Dosage: 300 MG, Q6H
     Dates: start: 20130105, end: 20130105
  2. CEFTRIAXONE [Concomitant]

REACTIONS (2)
  - Vomiting [Recovered/Resolved]
  - Rash maculo-papular [Recovered/Resolved]
